FAERS Safety Report 5079509-6 (Version None)
Quarter: 2006Q3

REPORT INFORMATION
  Report Type: 
  Country: None (occurrence: None)
  Receive Date: 20060814
  Receipt Date: 20051024
  Transmission Date: 20061208
  Serious: No
  Sender: FDA-Public Use
  Company Number: US-BRISTOL-MYERS SQUIBB COMPANY-13156401

PATIENT
  Age: 62 Year
  Sex: Male

DRUGS (4)
  1. GLUCOVANCE [Suspect]
     Indication: DIABETES MELLITUS
     Dosage: DURATION OF THERAPY - 4 OR 5 WEEKS
     Route: 048
  2. ATENOLOL [Concomitant]
  3. VYTORIN [Concomitant]
  4. AVALIDE [Concomitant]

REACTIONS (1)
  - DIZZINESS [None]
